FAERS Safety Report 5221495-X (Version None)
Quarter: 2007Q1

REPORT INFORMATION
  Report Type: 
  Country: None (occurrence: None)
  Receive Date: 20061201
  Receipt Date: 20060706
  Transmission Date: 20070707
  Serious: No
  Sender: FDA-Public Use
  Company Number: 2006PV017080

PATIENT
  Age: 58 Year
  Sex: Female
  Weight: 77.1115 kg

DRUGS (10)
  1. BYETTA [Suspect]
     Indication: DIABETES MELLITUS NON-INSULIN-DEPENDENT
     Dosage: 5 MCG;BID;SC
     Route: 058
     Dates: start: 20060705, end: 20060706
  2. METFORMIN HCL [Concomitant]
  3. LANTUS [Concomitant]
  4. AMBIEN [Concomitant]
  5. NEURONTIN [Concomitant]
  6. PRILOSEC [Concomitant]
  7. ESTRADIOL [Concomitant]
  8. FLUOXETINE [Concomitant]
  9. WELLBUTRIN [Concomitant]
  10. VITAMIN D AND CALCIUM [Concomitant]

REACTIONS (13)
  - ABDOMINAL DISTENSION [None]
  - COLD SWEAT [None]
  - DECREASED APPETITE [None]
  - ERUCTATION [None]
  - FLATULENCE [None]
  - INSOMNIA [None]
  - LIMB DISCOMFORT [None]
  - MUSCLE TIGHTNESS [None]
  - NAUSEA [None]
  - PARAESTHESIA [None]
  - SALIVARY HYPERSECRETION [None]
  - TENSION HEADACHE [None]
  - VOMITING [None]
